FAERS Safety Report 20393198 (Version 3)
Quarter: 2022Q2

REPORT INFORMATION
  Report Type: Report from Study
  Country: US (occurrence: US)
  Receive Date: 20220128
  Receipt Date: 20220427
  Transmission Date: 20220721
  Serious: Yes (Hospitalization, Other)
  Sender: FDA-Public Use
  Company Number: US-BRISTOL-MYERS SQUIBB COMPANY-BMS-2022-010734

PATIENT
  Age: 77 Year
  Sex: Male

DRUGS (26)
  1. APIXABAN [Suspect]
     Active Substance: APIXABAN
     Indication: Neoplasm malignant
  2. APIXABAN [Suspect]
     Active Substance: APIXABAN
     Indication: Embolism venous
  3. HUMIRA [Suspect]
     Active Substance: ADALIMUMAB
     Indication: Colitis ulcerative
     Dosage: CITRATE FREE (40 MG),
     Route: 058
  4. HUMIRA [Suspect]
     Active Substance: ADALIMUMAB
     Dosage: CITRATE FREE (40 MG,1 IN 2 WK)
     Route: 058
     Dates: start: 20211216
  5. HUMIRA [Suspect]
     Active Substance: ADALIMUMAB
     Dosage: 40 MILLIGRAMS
     Route: 058
     Dates: start: 2021, end: 20211111
  6. HUMIRA [Suspect]
     Active Substance: ADALIMUMAB
     Dosage: 40 MILLIGRAMS
     Route: 058
     Dates: start: 20210722
  7. HUMIRA [Suspect]
     Active Substance: ADALIMUMAB
     Dosage: 40 MILLIGRAMS
     Route: 058
     Dates: start: 20210805
  8. HUMIRA [Suspect]
     Active Substance: ADALIMUMAB
     Dosage: 40 MILLIGRAMS
     Route: 058
     Dates: start: 20210819
  9. HUMIRA [Suspect]
     Active Substance: ADALIMUMAB
     Dosage: 40 MILLIGRAMS
     Route: 058
     Dates: start: 20210902
  10. METHOTREXATE [Suspect]
     Active Substance: METHOTREXATE
     Indication: Colitis ulcerative
     Route: 058
     Dates: start: 202108, end: 202111
  11. METHOTREXATE [Suspect]
     Active Substance: METHOTREXATE
     Indication: Neoplasm malignant
  12. MODERNA COVID-19 VACCINE [Concomitant]
     Active Substance: ELASOMERAN
     Indication: COVID-19 immunisation
     Dosage: 1 IN 1 ONCE
  13. MODERNA COVID-19 VACCINE [Concomitant]
     Active Substance: ELASOMERAN
  14. MODERNA COVID-19 VACCINE [Concomitant]
     Active Substance: ELASOMERAN
  15. MODERNA COVID-19 VACCINE [Concomitant]
     Active Substance: ELASOMERAN
     Dosage: UNK(1ST DOSE)
     Route: 030
     Dates: start: 20210121, end: 20210121
  16. MODERNA COVID-19 VACCINE [Concomitant]
     Active Substance: ELASOMERAN
     Dosage: UNK(2ND DOSE)
     Route: 030
     Dates: start: 20210218, end: 20210218
  17. MODERNA COVID-19 VACCINE [Concomitant]
     Active Substance: ELASOMERAN
     Route: 030
     Dates: start: 202108, end: 202108
  18. LOSARTAN [Concomitant]
     Active Substance: LOSARTAN
     Indication: Cardiac disorder
  19. LOSARTAN [Concomitant]
     Active Substance: LOSARTAN
  20. LIPITOR [Concomitant]
     Active Substance: ATORVASTATIN CALCIUM
     Indication: Blood cholesterol
  21. LIPITOR [Concomitant]
     Active Substance: ATORVASTATIN CALCIUM
  22. METOPROLOL [Concomitant]
     Active Substance: METOPROLOL
     Indication: Hypertension
  23. METOPROLOL [Concomitant]
     Active Substance: METOPROLOL
  24. HYDROCHLOROTHIAZIDE [Concomitant]
     Active Substance: HYDROCHLOROTHIAZIDE
     Indication: Hypertension
  25. HYDROCHLOROTHIAZIDE [Concomitant]
     Active Substance: HYDROCHLOROTHIAZIDE
  26. PREDNISONE [Concomitant]
     Active Substance: PREDNISONE
     Indication: Product used for unknown indication
     Dosage: UNK
     Route: 065

REACTIONS (8)
  - Thrombosis [Recovering/Resolving]
  - Oxygen saturation decreased [Not Recovered/Not Resolved]
  - Gait disturbance [Recovered/Resolved]
  - Neoplasm malignant [Unknown]
  - Hair colour changes [Not Recovered/Not Resolved]
  - Alopecia [Recovered/Resolved]
  - Pulmonary thrombosis [Recovered/Resolved]
  - Lung disorder [Recovered/Resolved]

NARRATIVE: CASE EVENT DATE: 20210101
